FAERS Safety Report 20560771 (Version 1)
Quarter: 2022Q1

REPORT INFORMATION
  Report Type: Spontaneous
  Country: US (occurrence: US)
  Receive Date: 20220307
  Receipt Date: 20220307
  Transmission Date: 20220424
  Serious: No
  Sender: FDA-Public Use
  Company Number: US-AMGEN-USASP2022037270

PATIENT
  Age: 89 Year
  Sex: Male
  Weight: 93.424 kg

DRUGS (1)
  1. NEULASTA [Suspect]
     Active Substance: PEGFILGRASTIM
     Indication: Neutropenia
     Dosage: UNK
     Route: 065

REACTIONS (3)
  - Magnetic resonance imaging [Unknown]
  - Pain [Unknown]
  - Gait disturbance [Unknown]

NARRATIVE: CASE EVENT DATE: 20220201
